FAERS Safety Report 17239662 (Version 9)
Quarter: 2020Q4

REPORT INFORMATION
  Report Type: Spontaneous
  Country: CA (occurrence: CA)
  Receive Date: 20200106
  Receipt Date: 20201023
  Transmission Date: 20210113
  Serious: Yes (Other)
  Sender: FDA-Public Use
  Company Number: CA-CELLTRION INC.-2019CA024019

PATIENT

DRUGS (29)
  1. INFLECTRA [Suspect]
     Active Substance: INFLIXIMAB-DYYB
     Dosage: 5 MG/KG, EVERY (Q) 0, 2, 6 WEEKS, THEN EVERY 8 WEEKS
     Route: 042
     Dates: start: 20190625
  2. INFLECTRA [Suspect]
     Active Substance: INFLIXIMAB-DYYB
     Dosage: 5 MG/KG STAT DOSE, THEN EVERY 4 WEEKS
     Route: 042
     Dates: start: 20200401
  3. INFLECTRA [Suspect]
     Active Substance: INFLIXIMAB-DYYB
     Dosage: 5 MG/KG STAT DOSE, THEN EVERY 4 WEEKS
     Route: 042
     Dates: start: 20200429
  4. INFLECTRA [Suspect]
     Active Substance: INFLIXIMAB-DYYB
     Indication: CROHN^S DISEASE
     Dosage: 5 MG/KG, EVERY (Q) 0, 2, 6 WEEKS, THEN EVERY 8 WEEKS
     Route: 042
     Dates: start: 20190515, end: 20190625
  5. INFLECTRA [Suspect]
     Active Substance: INFLIXIMAB-DYYB
     Dosage: 5 MG/KG STAT DOSE, THEN EVERY 4 WEEKS
     Route: 042
     Dates: start: 20190821
  6. DIPHENHYDRAMINE. [Concomitant]
     Active Substance: DIPHENHYDRAMINE
     Indication: PREMEDICATION
     Dosage: 50 MG, UNK
     Dates: start: 20190918, end: 20190918
  7. DIPHENHYDRAMINE. [Concomitant]
     Active Substance: DIPHENHYDRAMINE
     Dosage: 50 MG, UNK
     Dates: start: 20200819, end: 20200819
  8. HYDROCORTISONE. [Concomitant]
     Active Substance: HYDROCORTISONE
     Dosage: 100 MG, UNK
     Route: 042
     Dates: start: 20201014, end: 20201014
  9. INFLECTRA [Suspect]
     Active Substance: INFLIXIMAB-DYYB
     Dosage: 5 MG/KG STAT DOSE, THEN EVERY 4 WEEKS
     Route: 042
     Dates: start: 20191211
  10. SYNTHROID [Concomitant]
     Active Substance: LEVOTHYROXINE SODIUM
     Dosage: 0.075 UG, 1X/DAY
     Route: 048
  11. DIPHENHYDRAMINE. [Concomitant]
     Active Substance: DIPHENHYDRAMINE
     Dosage: 50 MG, UNK
     Route: 048
     Dates: start: 20200624, end: 20200624
  12. HYDROCORTISONE. [Concomitant]
     Active Substance: HYDROCORTISONE
     Dosage: 100 MG, UNK
     Route: 042
     Dates: start: 20200916, end: 20200916
  13. INFLECTRA [Suspect]
     Active Substance: INFLIXIMAB-DYYB
     Dosage: 5 MG/KG STAT DOSE, THEN EVERY 4 WEEKS
     Route: 042
     Dates: start: 20191211
  14. INFLECTRA [Suspect]
     Active Substance: INFLIXIMAB-DYYB
     Dosage: 5 MG/KG STAT DOSE, THEN EVERY 4 WEEKS
     Route: 042
     Dates: start: 20200527
  15. INFLECTRA [Suspect]
     Active Substance: INFLIXIMAB-DYYB
     Dosage: 5 MG/KG STAT DOSE, THEN EVERY 4 WEEKS
     Route: 042
     Dates: start: 20200722
  16. INFLECTRA [Suspect]
     Active Substance: INFLIXIMAB-DYYB
     Dosage: 5 MG/KG STAT DOSE, THEN EVERY 4 WEEKS
     Route: 042
     Dates: start: 20200819
  17. INFLECTRA [Suspect]
     Active Substance: INFLIXIMAB-DYYB
     Dosage: 5 MG/KG STAT DOSE, THEN EVERY 4 WEEKS
     Route: 042
     Dates: start: 20190918
  18. INFLECTRA [Suspect]
     Active Substance: INFLIXIMAB-DYYB
     Dosage: 5 MG/KG STAT DOSE, THEN EVERY 4 WEEKS
     Route: 042
     Dates: start: 20200916
  19. DIPHENHYDRAMINE. [Concomitant]
     Active Substance: DIPHENHYDRAMINE
     Dosage: 50 MG, UNK
     Route: 048
     Dates: start: 20200916, end: 20200916
  20. HYDROCORTISONE. [Concomitant]
     Active Substance: HYDROCORTISONE
     Dosage: 100 MG, UNK
     Dates: start: 20200819, end: 20200819
  21. INFLECTRA [Suspect]
     Active Substance: INFLIXIMAB-DYYB
     Dosage: 5 MG/KG STAT DOSE, THEN EVERY 4 WEEKS
     Route: 042
     Dates: start: 20201014
  22. PREDNISONE. [Concomitant]
     Active Substance: PREDNISONE
     Dosage: 35MG THEN DECREASE BY 5MG FOR 4 WEEKS, THEN FOLLOW UP WITH MD
     Route: 048
  23. INFLECTRA [Suspect]
     Active Substance: INFLIXIMAB-DYYB
     Dosage: 5 MG/KG STAT DOSE, THEN EVERY 4 WEEKS
     Route: 042
     Dates: start: 20200304
  24. DIPHENHYDRAMINE. [Concomitant]
     Active Substance: DIPHENHYDRAMINE
     Dosage: 50 MG, UNK
     Route: 048
     Dates: start: 20201014, end: 20201014
  25. HYDROCORTISONE. [Concomitant]
     Active Substance: HYDROCORTISONE
     Indication: PREMEDICATION
     Dosage: 100 MG, UNK
     Dates: start: 20190918, end: 20190918
  26. INFLECTRA [Suspect]
     Active Substance: INFLIXIMAB-DYYB
     Dosage: 5 MG/KG, EVERY (Q) 0, 2, 6 WEEKS, THEN EVERY 8 WEEKS
     Route: 042
     Dates: start: 20190530
  27. INFLECTRA [Suspect]
     Active Substance: INFLIXIMAB-DYYB
     Dosage: 5 MG/KG STAT DOSE, THEN EVERY 4 WEEKS
     Route: 042
     Dates: start: 20200624
  28. PREDNISONE. [Concomitant]
     Active Substance: PREDNISONE
     Dosage: 5MG (5 TABLETS DAILY) THEN DECREASE BY 5MG FOR 4 WEEKS, THEN FOLLOW UP WITH MD
     Route: 048
  29. HYDROCORTISONE. [Concomitant]
     Active Substance: HYDROCORTISONE
     Dosage: 100 MG, UNK
     Route: 042
     Dates: start: 20200624, end: 20200624

REACTIONS (10)
  - Heart rate decreased [Unknown]
  - Blood pressure fluctuation [Unknown]
  - Heart rate abnormal [Unknown]
  - Endometriosis [Unknown]
  - Heart rate increased [Unknown]
  - Sleep disorder [Unknown]
  - Condition aggravated [Not Recovered/Not Resolved]
  - Body temperature decreased [Recovered/Resolved]
  - Off label use [Unknown]
  - Heart rate irregular [Unknown]

NARRATIVE: CASE EVENT DATE: 201908
